FAERS Safety Report 6921208-7 (Version None)
Quarter: 2010Q3

REPORT INFORMATION
  Report Type: 
  Country: None (occurrence: None)
  Receive Date: 20100812
  Receipt Date: 20100804
  Transmission Date: 20110219
  Serious: Yes (Hospitalization, Disabling)
  Sender: FDA-Public Use
  Company Number: A0865992A

PATIENT
  Age: 51 Year
  Sex: Female
  Weight: 101.8 kg

DRUGS (8)
  1. AVANDIA [Suspect]
     Dosage: 8MG TWICE PER DAY
     Route: 048
     Dates: start: 20010101, end: 20050101
  2. AVANDAMET [Suspect]
     Dosage: 1TAB TWICE PER DAY
     Route: 048
     Dates: start: 20060919, end: 20070806
  3. LOPRESSOR [Concomitant]
  4. GLYBURIDE [Concomitant]
  5. NORVASC [Concomitant]
  6. ZOCOR [Concomitant]
  7. DIOVAN [Concomitant]
  8. HYDROCHLOROTHIAZIDE [Concomitant]

REACTIONS (3)
  - CARDIAC FAILURE CONGESTIVE [None]
  - CORONARY ARTERY BYPASS [None]
  - MYOCARDIAL INFARCTION [None]
